FAERS Safety Report 25077619 (Version 2)
Quarter: 2025Q4

REPORT INFORMATION
  Report Type: Spontaneous
  Country: US (occurrence: US)
  Receive Date: 20250314
  Receipt Date: 20251103
  Transmission Date: 20260119
  Serious: No
  Sender: CELLTRION
  Company Number: US-CELLTRION INC.-2025US005348

PATIENT

DRUGS (1)
  1. ZYMFENTRA [Suspect]
     Active Substance: INFLIXIMAB-DYYB
     Indication: Crohn^s disease
     Dosage: 120 MG, ONCE EVERY TWO WEEKS
     Route: 058
     Dates: start: 20250131

REACTIONS (1)
  - Abdominal pain [Recovered/Resolved]

NARRATIVE: CASE EVENT DATE: 20250209
